FAERS Safety Report 20685319 (Version 1)
Quarter: 2022Q2

REPORT INFORMATION
  Report Type: Spontaneous
  Country: BR (occurrence: BR)
  Receive Date: 20220407
  Receipt Date: 20220407
  Transmission Date: 20220720
  Serious: Yes (Life-Threatening, Other)
  Sender: FDA-Public Use
  Company Number: BR-NOVARTISPH-NVSC2022BR078962

PATIENT
  Sex: Female

DRUGS (2)
  1. ENTRESTO [Suspect]
     Active Substance: SACUBITRIL\VALSARTAN
     Indication: Product used for unknown indication
     Dosage: 100 MG (49/51 MG)
     Route: 065
     Dates: start: 20220315, end: 20220318
  2. ENTRESTO [Suspect]
     Active Substance: SACUBITRIL\VALSARTAN
     Dosage: UNK
     Route: 065

REACTIONS (9)
  - Feeling abnormal [Recovered/Resolved]
  - Neoplasm malignant [Unknown]
  - Cardiac dysfunction [Not Recovered/Not Resolved]
  - Malaise [Recovered/Resolved]
  - Vertigo [Recovered/Resolved]
  - Cardiac disorder [Unknown]
  - Dyspnoea [Recovered/Resolved]
  - Gait disturbance [Recovered/Resolved]
  - Drug ineffective [Unknown]

NARRATIVE: CASE EVENT DATE: 20220315
